FAERS Safety Report 7584763-2 (Version None)
Quarter: 2011Q2

REPORT INFORMATION
  Report Type: 
  Country: None (occurrence: None)
  Receive Date: 20110630
  Receipt Date: 20110621
  Transmission Date: 20111010
  Serious: Yes (Hospitalization)
  Sender: FDA-Public Use
  Company Number: PHFR2011GB02364

PATIENT
  Sex: Male

DRUGS (1)
  1. CLOZAPINE [Suspect]
     Indication: SCHIZOPHRENIA
     Dosage: 750 MG, PER DAY
     Route: 048
     Dates: start: 20050926, end: 20110426

REACTIONS (9)
  - GASTRIC ULCER [None]
  - HAEMOGLOBIN DECREASED [None]
  - OESOPHAGEAL STENOSIS [None]
  - NAUSEA [None]
  - GASTROINTESTINAL HAEMORRHAGE [None]
  - WEIGHT DECREASED [None]
  - VOMITING [None]
  - GENERAL PHYSICAL HEALTH DETERIORATION [None]
  - OESOPHAGITIS [None]
